FAERS Safety Report 5761623-0 (Version None)
Quarter: 2008Q2

REPORT INFORMATION
  Report Type: 
  Country: None (occurrence: None)
  Receive Date: 20080606
  Receipt Date: 20080529
  Transmission Date: 20081010
  Serious: Yes (Hospitalization, Other)
  Sender: FDA-Public Use
  Company Number: JP-PFIZER INC-2008042486

PATIENT
  Sex: Male
  Weight: 61.08 kg

DRUGS (4)
  1. NORVASC [Suspect]
     Indication: HYPERTENSION
     Route: 048
     Dates: start: 20040428, end: 20080502
  2. NU LOTAN [Suspect]
     Indication: ANGINA PECTORIS
     Route: 048
     Dates: start: 20050101, end: 20080502
  3. ASPIRIN [Concomitant]
     Route: 048
     Dates: start: 20050101, end: 20080502
  4. NICORANDIL [Concomitant]
     Route: 048
     Dates: start: 20050101, end: 20080502

REACTIONS (1)
  - RHABDOMYOLYSIS [None]
